FAERS Safety Report 6300100-5 (Version None)
Quarter: 2009Q3

REPORT INFORMATION
  Report Type: 
  Country: None (occurrence: None)
  Receive Date: 20090806
  Receipt Date: 20090728
  Transmission Date: 20100115
  Serious: Yes (Other)
  Sender: FDA-Public Use
  Company Number: CA-ABBOTT-09P-028-0588217-00

PATIENT
  Sex: Male
  Weight: 96.702 kg

DRUGS (4)
  1. HUMIRA [Suspect]
     Indication: PSORIATIC ARTHROPATHY
     Route: 058
     Dates: start: 20080827
  2. CELEBREX [Suspect]
     Indication: DRUG USE FOR UNKNOWN INDICATION
     Dates: end: 20090501
  3. METHOTREXATE [Concomitant]
     Indication: DRUG USE FOR UNKNOWN INDICATION
  4. FOLIC ACID [Concomitant]
     Indication: DRUG USE FOR UNKNOWN INDICATION

REACTIONS (3)
  - BLOOD PRESSURE INCREASED [None]
  - BLOOD URINE PRESENT [None]
  - NEPHROLITHIASIS [None]
